FAERS Safety Report 8301833-1 (Version None)
Quarter: 2012Q2

REPORT INFORMATION
  Report Type: 
  Country: None (occurrence: None)
  Receive Date: 20120420
  Receipt Date: 20120417
  Transmission Date: 20120825
  Serious: Yes (Life-Threatening, Hospitalization, Disabling)
  Sender: FDA-Public Use
  Company Number: BE-B.I. PHARMACEUTICALS,INC./RIDGEFIELD-2012-BL-00155BL

PATIENT
  Sex: Male
  Weight: 70 kg

DRUGS (4)
  1. CORDARONE [Concomitant]
  2. ZOCOR [Concomitant]
  3. AMLODIPINE BESYLATE [Concomitant]
  4. PRADAXA [Suspect]
     Indication: ATRIAL FIBRILLATION
     Dosage: 220 MG
     Route: 048
     Dates: start: 20111201, end: 20120221

REACTIONS (6)
  - ECCHYMOSIS [None]
  - COAGULOPATHY [None]
  - RENAL FAILURE ACUTE [None]
  - HAEMOPTYSIS [None]
  - SPLINTER HAEMORRHAGES [None]
  - EPISTAXIS [None]
